FAERS Safety Report 24226035 (Version 2)
Quarter: 2024Q4

REPORT INFORMATION
  Report Type: Report from Study
  Country: CO (occurrence: CO)
  Receive Date: 20240820
  Receipt Date: 20241010
  Transmission Date: 20250115
  Serious: Yes (Other)
  Sender: TAKEDA
  Company Number: CO-TAKEDA-2021TUS079350

PATIENT
  Age: 53 Year
  Sex: Female
  Weight: 58 kg

DRUGS (2)
  1. VEDOLIZUMAB [Suspect]
     Active Substance: VEDOLIZUMAB
     Indication: Colitis ulcerative
     Dosage: 900 MILLIGRAM
     Route: 042
  2. VEDOLIZUMAB [Suspect]
     Active Substance: VEDOLIZUMAB
     Dosage: 300 MILLIGRAM
     Route: 042
     Dates: end: 20240812

REACTIONS (10)
  - Rectal haemorrhage [Recovered/Resolved]
  - Incorrect dose administered [Unknown]
  - Cystitis [Recovering/Resolving]
  - Pain [Unknown]
  - Malaise [Unknown]
  - Secretion discharge [Unknown]
  - Diarrhoea [Recovered/Resolved]
  - Therapeutic response decreased [Unknown]
  - Nasal congestion [Unknown]
  - Chills [Unknown]

NARRATIVE: CASE EVENT DATE: 20211109
